FAERS Safety Report 4560819-3 (Version None)
Quarter: 2005Q1

REPORT INFORMATION
  Report Type: 
  Country: None (occurrence: None)
  Receive Date: 20050121
  Receipt Date: 20050105
  Transmission Date: 20050727
  Serious: Yes (Death)
  Sender: FDA-Public Use
  Company Number: 9615

PATIENT
  Age: 75 Year
  Sex: Female

DRUGS (7)
  1. METHOTREXATE [Suspect]
     Indication: POLYMYALGIA RHEUMATICA
     Dosage: 15 WEEKLY SC
     Route: 058
     Dates: end: 20040801
  2. PREDNISONE [Suspect]
     Indication: POLYMYALGIA RHEUMATICA
     Dosage: 15 MG PO
     Route: 048
     Dates: end: 20040801
  3. INFLIXIMAB [Suspect]
     Dosage: 80 MG WEEKLY, IV
     Route: 042
     Dates: end: 20040801
  4. LEVOTHYROXINE SODIUM [Concomitant]
  5. AMLODIPINE BESYLATE [Concomitant]
  6. BISOPROLOL FUMARATE [Concomitant]
  7. ACETYLSALICYLIC ACID SRT [Concomitant]

REACTIONS (2)
  - LYMPHOPENIA [None]
  - PNEUMOCYSTIS JIROVECI PNEUMONIA [None]
